FAERS Safety Report 7701090-0 (Version None)
Quarter: 2011Q3

REPORT INFORMATION
  Report Type: 
  Country: None (occurrence: None)
  Receive Date: 20110822
  Receipt Date: 20110815
  Transmission Date: 20111222
  Serious: No
  Sender: FDA-Public Use
  Company Number: US-PFIZER INC-2011186357

PATIENT
  Sex: Female
  Weight: 69 kg

DRUGS (2)
  1. PREMPRO [Suspect]
     Dosage: 0.625 MG, 1X/DAY
  2. PREMPRO [Suspect]
     Indication: MENOPAUSAL SYMPTOMS
     Dosage: UNK DOSE TABLET, 1XDAY
     Route: 048
     Dates: start: 20060101

REACTIONS (1)
  - VAGINAL HAEMORRHAGE [None]
